FAERS Safety Report 9009095 (Version 1)
Quarter: 2013Q1

REPORT INFORMATION
  Report Type: Spontaneous
  Country: US (occurrence: US)
  Receive Date: 20130111
  Receipt Date: 20130111
  Transmission Date: 20140127
  Serious: Yes (Hospitalization, Other)
  Sender: FDA-Public Use
  Company Number: US-AMGEN-USASP2013001806

PATIENT
  Age: 59 Year
  Sex: Female
  Weight: 99.77 kg

DRUGS (8)
  1. ENBREL [Suspect]
     Indication: PSORIASIS
     Dosage: 50 MG, QWK
     Route: 058
  2. CALTRATE                           /00944201/ [Concomitant]
     Dosage: 600 UNK, UNK
  3. IBUPROFEN [Concomitant]
     Dosage: 200 MG, UNK
  4. CLARITIN                           /00413701/ [Concomitant]
     Dosage: 10 MG, UNK
  5. FISH OIL [Concomitant]
     Dosage: UNK
  6. DAPSONE [Concomitant]
     Dosage: 100 MG, UNK
  7. FOLIC ACID [Concomitant]
     Dosage: 5 MG, UNK
  8. B12                                /00056201/ [Concomitant]
     Dosage: 1 MG, UNK

REACTIONS (3)
  - Renal impairment [Unknown]
  - Dehydration [Unknown]
  - Type 2 diabetes mellitus [Unknown]
